FAERS Safety Report 9287808 (Version 3)
Quarter: 2013Q4

REPORT INFORMATION
  Report Type: Report from Study
  Country: DE (occurrence: DE)
  Receive Date: 20130514
  Receipt Date: 20131231
  Transmission Date: 20140711
  Serious: Yes (Hospitalization)
  Sender: FDA-Public Use
  Company Number: DE-ELI_LILLY_AND_COMPANY-DE201304008824

PATIENT
  Age: 63 Year
  Sex: Female
  Weight: 85 kg

DRUGS (3)
  1. OLANZAPINE LONG-ACTING IM [Suspect]
     Indication: SCHIZOPHRENIA
     Dosage: UNK
     Route: 030
     Dates: start: 20100219
  2. METFORMIN [Concomitant]
     Indication: TYPE 2 DIABETES MELLITUS
     Dosage: UNK
     Dates: start: 20121005
  3. REPAGLINIDE [Concomitant]
     Indication: TYPE 2 DIABETES MELLITUS
     Dosage: 2 MG, UNK
     Dates: start: 20130320

REACTIONS (2)
  - Metabolic syndrome [Recovered/Resolved]
  - Diabetes mellitus [Recovered/Resolved]
